FAERS Safety Report 9124340 (Version 1)
Quarter: 2013Q1

REPORT INFORMATION
  Report Type: Spontaneous
  Country: ES (occurrence: ES)
  Receive Date: 20130116
  Receipt Date: 20130116
  Transmission Date: 20140127
  Serious: Yes (Other)
  Sender: FDA-Public Use
  Company Number: ES-009507513-1301ESP006254

PATIENT
  Sex: 0

DRUGS (1)
  1. ONCOTICE [Suspect]
     Dosage: 2-8 X 108 UFC
     Route: 043

REACTIONS (1)
  - Mycobacterium avium complex infection [Unknown]
